FAERS Safety Report 12474211 (Version 3)
Quarter: 2016Q3

REPORT INFORMATION
  Report Type: Spontaneous
  Country: GB (occurrence: GB)
  Receive Date: 20160616
  Receipt Date: 20160729
  Transmission Date: 20161109
  Serious: Yes (Other)
  Sender: FDA-Public Use
  Company Number: GB-ROCHE-1765017

PATIENT
  Sex: Female

DRUGS (1)
  1. HERCEPTIN [Suspect]
     Active Substance: TRASTUZUMAB
     Indication: PRODUCT USED FOR UNKNOWN INDICATION
     Route: 058

REACTIONS (18)
  - Chest pain [Unknown]
  - Decreased appetite [Unknown]
  - Urinary incontinence [Unknown]
  - Breast pain [Unknown]
  - Musculoskeletal pain [Unknown]
  - Arthralgia [Not Recovered/Not Resolved]
  - Pruritus [Unknown]
  - Fatigue [Not Recovered/Not Resolved]
  - Alopecia [Not Recovered/Not Resolved]
  - Procedural pain [Unknown]
  - Oral pain [Unknown]
  - Constipation [Unknown]
  - Insomnia [Unknown]
  - Asthenia [Unknown]
  - Arthritis [Unknown]
  - Dizziness [Unknown]
  - Weight decreased [Unknown]
  - Mouth ulceration [Not Recovered/Not Resolved]
